FAERS Safety Report 14353088 (Version 1)
Quarter: 2018Q1

REPORT INFORMATION
  Report Type: Spontaneous
  Country: GB (occurrence: GB)
  Receive Date: 20180104
  Receipt Date: 20180104
  Transmission Date: 20180509
  Serious: Yes (Death, Other)
  Sender: FDA-Public Use
  Company Number: GB-MYLANLABS-2017M1083107

PATIENT
  Age: 63 Year
  Sex: Male

DRUGS (2)
  1. PROGRAF [Suspect]
     Active Substance: TACROLIMUS\TACROLIMUS ANHYDROUS
     Indication: PRODUCT USED FOR UNKNOWN INDICATION
     Dosage: 2 MG, QD
     Route: 048
     Dates: start: 2005
  2. MYCOPHENOLATE MOFETIL. [Suspect]
     Active Substance: MYCOPHENOLATE MOFETIL
     Indication: HEART TRANSPLANT
     Dosage: 1000 MG, QD
     Route: 048
     Dates: start: 2005

REACTIONS (6)
  - Lentigo maligna [Fatal]
  - Renal failure [Fatal]
  - Cardiac failure [Fatal]
  - Basal cell carcinoma [Fatal]
  - Metastasis [Fatal]
  - Squamous cell carcinoma of skin [Fatal]

NARRATIVE: CASE EVENT DATE: 2013
